FAERS Safety Report 4831092-3 (Version None)
Quarter: 2005Q4

REPORT INFORMATION
  Report Type: 
  Country: None (occurrence: None)
  Receive Date: 20051116
  Receipt Date: 20051116
  Transmission Date: 20060501
  Serious: Yes (Other)
  Sender: FDA-Public Use
  Company Number: None

PATIENT
  Age: 62 Year
  Sex: Female
  Weight: 95.2554 kg

DRUGS (1)
  1. POLYGRAM 10% BAXTER [Suspect]
     Dosage: 25 GRAMS DAILY IV
     Route: 042
     Dates: start: 20051028, end: 20051028

REACTIONS (7)
  - ANXIETY [None]
  - BLOOD PRESSURE DECREASED [None]
  - INFUSION RELATED REACTION [None]
  - NAUSEA [None]
  - SENSATION OF HEAVINESS [None]
  - TONGUE DISORDER [None]
  - VOMITING [None]
